FAERS Safety Report 8142784-5 (Version None)
Quarter: 2012Q1

REPORT INFORMATION
  Report Type: 
  Country: None (occurrence: None)
  Receive Date: 20120216
  Receipt Date: 20120213
  Transmission Date: 20120608
  Serious: Yes (Other)
  Sender: FDA-Public Use
  Company Number: US-MERCK-1202USA02274

PATIENT
  Sex: Female

DRUGS (5)
  1. FOSAMAX [Suspect]
     Route: 048
     Dates: start: 20020301, end: 20090101
  2. FOSAMAX [Suspect]
     Route: 048
     Dates: start: 20020301, end: 20090101
  3. BONIVA [Suspect]
     Route: 065
     Dates: start: 20020301, end: 20090101
  4. FOSAMAX PLUS D [Suspect]
     Route: 048
     Dates: start: 20020301, end: 20090101
  5. IBANDRONATE SODIUM [Suspect]
     Route: 065
     Dates: start: 20020301, end: 20090101

REACTIONS (1)
  - FEMUR FRACTURE [None]
